FAERS Safety Report 6844829-9 (Version None)
Quarter: 2010Q3

REPORT INFORMATION
  Report Type: 
  Country: None (occurrence: None)
  Receive Date: 20100715
  Receipt Date: 20100705
  Transmission Date: 20110219
  Serious: Yes (Other)
  Sender: FDA-Public Use
  Company Number: DE-PFIZER INC-2010083416

PATIENT
  Age: 75 Year

DRUGS (1)
  1. DOXORUBICIN HCL [Suspect]
     Route: 043

REACTIONS (1)
  - URINARY BLADDER RUPTURE [None]
